FAERS Safety Report 4977734-3 (Version None)
Quarter: 2006Q1

REPORT INFORMATION
  Report Type: 
  Country: None (occurrence: None)
  Receive Date: 20060215
  Receipt Date: 20051201
  Transmission Date: 20060701
  Serious: Yes (Death)
  Sender: FDA-Public Use
  Company Number: MC200501033

PATIENT
  Age: 85 Year
  Sex: Male
  Weight: 76.2 kg

DRUGS (2)
  1. ANGIOMAX [Suspect]
     Indication: PERCUTANEOUS CORONARY INTERVENTION
     Dosage: 11.3 ML, BOLUS, IV BOLUS
     Route: 040
     Dates: start: 20051024
  2. ANGIOMAX [Suspect]
     Dosage: 20.8 ML, HR, INTRAVENOUS
     Route: 042
     Dates: start: 20051024

REACTIONS (1)
  - THROMBOSIS [None]
